FAERS Safety Report 4801856-0 (Version None)
Quarter: 2005Q4

REPORT INFORMATION
  Report Type: 
  Country: None (occurrence: None)
  Receive Date: 20051011
  Receipt Date: 20050928
  Transmission Date: 20060501
  Serious: Yes (Hospitalization)
  Sender: FDA-Public Use
  Company Number: 217881

PATIENT
  Age: 17 Year
  Sex: Male

DRUGS (1)
  1. NUTROPIN [Suspect]
     Indication: GROWTH HORMONE DEFICIENCY
     Dosage: 0.54 ML, QD
     Dates: start: 20030314, end: 20050530

REACTIONS (4)
  - DECREASED APPETITE [None]
  - EATING DISORDER [None]
  - FATIGUE [None]
  - WEIGHT DECREASED [None]
